FAERS Safety Report 6366469-0 (Version None)
Quarter: 2009Q3

REPORT INFORMATION
  Report Type: 
  Country: None (occurrence: None)
  Receive Date: 20090921
  Receipt Date: 20090908
  Transmission Date: 20100115
  Serious: Yes (Other)
  Sender: FDA-Public Use
  Company Number: NL-ROCHE-655829

PATIENT

DRUGS (5)
  1. CAPECITABINE [Suspect]
     Dosage: 1000 MG/M2 BID DAYS 1 TO 14  , DOSE FORM, ROUTE, AMOUNT AND FREQUENCY AS PER PROTOCOL.
     Route: 048
  2. BEVACIZUMAB [Suspect]
     Dosage: 7.5 MG/KG ON DAY 1, DOSE FORM, ROUTE, AMOUNT AND FREQUENCY AS PER PROTOCOL.
     Route: 042
  3. OXALIPLATIN [Suspect]
     Dosage: 130 MG/M2 ON DAY 1, DOSE FORM, ROUTE, AMOUNT AND FREQUENCY AS PER PROTOCOL.
     Route: 042
  4. CETUXIMAB [Suspect]
     Dosage: 400 MG/M2 LOADING DOSE DAY1 CYCLE1, DOSE FORM, ROUTE, AMOUNT AND FREQUENCY AS PER PROTOCOL.
     Route: 042
  5. CETUXIMAB [Suspect]
     Dosage: 250 MG/M2 WEEKLY (NORMAL CYCLE = DAYS 1, 8, 15),
     Route: 042

REACTIONS (3)
  - CHEST PAIN [None]
  - PERICARDITIS [None]
  - TROPONIN [None]
